FAERS Safety Report 7255763-7 (Version None)
Quarter: 2011Q1

REPORT INFORMATION
  Report Type: 
  Country: None (occurrence: None)
  Receive Date: 20110129
  Receipt Date: 20100825
  Transmission Date: 20110831
  Serious: No
  Sender: FDA-Public Use
  Company Number: US-ABBOTT-10P-163-0667566-00

PATIENT
  Sex: Male
  Weight: 77.18 kg

DRUGS (4)
  1. MIRALAX [Concomitant]
     Indication: CROHN'S DISEASE
  2. HUMIRA [Suspect]
     Indication: CROHN'S DISEASE
     Route: 058
     Dates: start: 20081101
  3. MULTIVITAMIN [Concomitant]
     Indication: VITAMIN SUPPLEMENTATION
     Dosage: NOT REPORTED
  4. UNKNOWN ACNE MEDICATION [Concomitant]
     Indication: ACNE
     Dosage: NOT REPORTED

REACTIONS (3)
  - INJECTION SITE PAIN [None]
  - INJECTION SITE URTICARIA [None]
  - DEVICE MALFUNCTION [None]
